FAERS Safety Report 7242615-1 (Version None)
Quarter: 2011Q1

REPORT INFORMATION
  Report Type: 
  Country: None (occurrence: None)
  Receive Date: 20110125
  Receipt Date: 20110119
  Transmission Date: 20110831
  Serious: Yes (Hospitalization, Other)
  Sender: FDA-Public Use
  Company Number: CH-PFIZER INC-2011002204

PATIENT
  Age: 88 Year
  Sex: Male

DRUGS (2)
  1. LYRICA [Suspect]
     Dosage: UNK
  2. MIDAZOLAM [Concomitant]
     Indication: SLEEP DISORDER
     Dosage: UNK

REACTIONS (12)
  - DRUG ADMINISTRATION ERROR [None]
  - WHEEZING [None]
  - PRURITUS [None]
  - FALL [None]
  - SOMNOLENCE [None]
  - VOMITING [None]
  - HALLUCINATION [None]
  - CONFUSIONAL STATE [None]
  - ASTHENIA [None]
  - SWELLING FACE [None]
  - EPISTAXIS [None]
  - HYPOTHERMIA [None]
